FAERS Safety Report 18284757 (Version 2)
Quarter: 2020Q4

REPORT INFORMATION
  Report Type: Report from Study
  Country: None (occurrence: US)
  Receive Date: 20200919
  Receipt Date: 20201211
  Transmission Date: 20210113
  Serious: Yes (Hospitalization, Other)
  Sender: FDA-Public Use
  Company Number: US-ABBVIE-20K-163-3567241-00

PATIENT
  Age: 54 Year
  Sex: Male

DRUGS (1)
  1. HUMIRA [Suspect]
     Active Substance: ADALIMUMAB
     Indication: CROHN^S DISEASE
     Route: 058
     Dates: start: 20200626, end: 2020

REACTIONS (13)
  - Infection susceptibility increased [Unknown]
  - Urinary tract infection [Recovering/Resolving]
  - Intestinal obstruction [Unknown]
  - Ureteric injury [Unknown]
  - Clostridium difficile infection [Recovering/Resolving]
  - Stent placement [Unknown]
  - Pyrexia [Unknown]
  - Crohn^s disease [Unknown]
  - Urinary tract procedural complication [Unknown]
  - Cystitis [Recovering/Resolving]
  - Colonic abscess [Recovering/Resolving]
  - Intestinal fistula [Unknown]
  - Large intestine perforation [Recovering/Resolving]

NARRATIVE: CASE EVENT DATE: 2020
